FAERS Safety Report 25504202 (Version 1)
Quarter: 2025Q2

REPORT INFORMATION
  Report Type: Spontaneous
  Country: US (occurrence: None)
  Receive Date: 20250630
  Receipt Date: 20250630
  Transmission Date: 20250717
  Serious: Yes (Other)
  Sender: FDA-CTU
  Company Number: None

PATIENT
  Age: 25 Year
  Sex: Female
  Weight: 151.6 kg

DRUGS (6)
  1. VANCOMYCIN HYDROCHLORIDE [Suspect]
     Active Substance: VANCOMYCIN HYDROCHLORIDE
     Indication: Sepsis
     Route: 041
     Dates: start: 20250625, end: 20250626
  2. PIPERACILLIN AND TAZOBACTAM [Suspect]
     Active Substance: PIPERACILLIN SODIUM\TAZOBACTAM SODIUM
     Indication: Sepsis
     Route: 041
     Dates: start: 20250624, end: 20250626
  3. PIPERACILLIN AND TAZOBACTAM [Suspect]
     Active Substance: PIPERACILLIN SODIUM\TAZOBACTAM SODIUM
     Dosage: FREQUENCY : 4 TIMES A DAY;?
  4. ketorolac 15mg injection [Concomitant]
     Dates: start: 20250624, end: 20250626
  5. ciprodex otic 4 drops BID [Concomitant]
     Dates: start: 20250624, end: 20250626
  6. LOSARTAN [Concomitant]
     Active Substance: LOSARTAN
     Dates: start: 20250430, end: 20250626

REACTIONS (3)
  - Haemodialysis [None]
  - Acute kidney injury [None]
  - Drug level above therapeutic [None]

NARRATIVE: CASE EVENT DATE: 20250626
